FAERS Safety Report 7895475-X (Version None)
Quarter: 2011Q4

REPORT INFORMATION
  Report Type: 
  Country: None (occurrence: None)
  Receive Date: 20111102
  Receipt Date: 20111024
  Transmission Date: 20120403
  Serious: Yes (Death, Other)
  Sender: FDA-Public Use
  Company Number: DKLU1072184

PATIENT
  Age: 21 Year
  Sex: Female

DRUGS (5)
  1. KEPPRA [Concomitant]
  2. PRIMIDONE [Concomitant]
  3. LORAZEPAM [Concomitant]
  4. CLONAZEPAM [Concomitant]
  5. SABRIL [Suspect]
     Indication: CONVULSION
     Dosage: 500 MG MILLIGRAM(S), 6 IN 1 D, ORAL
     Route: 048
     Dates: start: 20110401

REACTIONS (2)
  - CONVULSION [None]
  - WEIGHT INCREASED [None]
